FAERS Safety Report 5207738-7 (Version None)
Quarter: 2006Q4

REPORT INFORMATION
  Report Type: 
  Country: None (occurrence: None)
  Receive Date: 20061030
  Receipt Date: 20060823
  Transmission Date: 20070319
  Serious: No
  Sender: FDA-Public Use
  Company Number: 2006CT000758

PATIENT
  Age: 19 Year
  Sex: Female

DRUGS (17)
  1. VENTAVIS [Suspect]
     Indication: PULMONARY HYPERTENSION
     Dosage: SEE IMAGE
     Route: 055
     Dates: start: 20060224, end: 20060307
  2. VENTAVIS [Suspect]
     Indication: PULMONARY HYPERTENSION
     Dosage: SEE IMAGE
     Route: 055
     Dates: start: 20060307, end: 20060501
  3. VENTAVIS [Suspect]
     Indication: PULMONARY HYPERTENSION
     Dosage: SEE IMAGE
     Route: 055
     Dates: start: 20060501, end: 20060901
  4. BOSENTAN [Concomitant]
  5. ASPIRIN [Concomitant]
  6. LASIX [Concomitant]
  7. ALDACTONE [Concomitant]
  8. DIGOXIN [Concomitant]
  9. PROMETHAZINE [Concomitant]
  10. DEPO-PROVERA [Concomitant]
  11. SOMA [Concomitant]
  12. FLOVENT [Concomitant]
  13. ALBUTEROL [Concomitant]
  14. VICODIN [Concomitant]
  15. XANAX [Concomitant]
  16. CODEINE PHOSPHATE / GUAIFENESIN [Concomitant]
  17. MAXAIR [Concomitant]

REACTIONS (2)
  - CHEST PAIN [None]
  - NASAL CONGESTION [None]
